FAERS Safety Report 8891422 (Version 1)
Quarter: 2012Q4

REPORT INFORMATION
  Report Type: Spontaneous
  Country: US (occurrence: None)
  Receive Date: 20121105
  Receipt Date: 20121105
  Transmission Date: 20130627
  Serious: Yes (Hospitalization)
  Sender: FDA-Public Use
  Company Number: None

PATIENT
  Age: 68 Year
  Sex: Male
  Weight: 90.7 kg

DRUGS (1)
  1. PREDNISONE [Suspect]
     Indication: GOUT
     Dates: start: 20120905, end: 20120912

REACTIONS (1)
  - Gastric haemorrhage [None]
